FAERS Safety Report 8916891 (Version 1)
Quarter: 2012Q4

REPORT INFORMATION
  Report Type: 
  Country: DK (occurrence: FR)
  Receive Date: 20121120
  Receipt Date: 20121120
  Transmission Date: 20130627
  Serious: Yes (Life-Threatening)
  Sender: FDA-Public Use
  Company Number: FR-FRI-1000040522

PATIENT
  Age: 67 Year
  Sex: Female

DRUGS (7)
  1. ESCITALOPRAM [Suspect]
     Route: 048
     Dates: end: 20121007
  2. PREVISCAN [Suspect]
     Route: 048
     Dates: start: 200703, end: 20121007
  3. LORAZEPAM [Concomitant]
  4. AKINETON [Concomitant]
  5. MICARDIS [Concomitant]
  6. XEROQUEL [Concomitant]
     Dates: end: 20121007
  7. ASCOFER [Concomitant]

REACTIONS (1)
  - Haemorrhagic stroke [Recovered/Resolved with Sequelae]
